FAERS Safety Report 5237206-8 (Version None)
Quarter: 2007Q1

REPORT INFORMATION
  Report Type: 
  Country: None (occurrence: None)
  Receive Date: 20070213
  Receipt Date: 20070205
  Transmission Date: 20070707
  Serious: Yes (Hospitalization)
  Sender: FDA-Public Use
  Company Number: HQWYE398826JUL06

PATIENT
  Sex: Female
  Weight: 57 kg

DRUGS (10)
  1. MYLOTARG [Suspect]
     Indication: ACUTE MYELOID LEUKAEMIA RECURRENT
     Route: 041
     Dates: start: 20060601, end: 20060601
  2. MYLOTARG [Suspect]
     Route: 041
     Dates: start: 20060615, end: 20060615
  3. ITRIZOLE [Concomitant]
     Indication: PROPHYLAXIS
     Dosage: 200 MG/DAY
     Route: 048
     Dates: start: 20060601, end: 20060714
  4. EXACIN [Concomitant]
     Indication: SEPSIS
     Dosage: 400 MG/DAY
     Route: 041
     Dates: start: 20060614, end: 20060619
  5. EXACIN [Concomitant]
     Dosage: 400 MG/DAY
     Route: 041
     Dates: start: 20060627, end: 20060706
  6. DIOVAN [Concomitant]
     Indication: HYPERTENSION
     Dosage: 80 MG/DAY
     Route: 048
     Dates: start: 20060601, end: 20060714
  7. INSULIN [Concomitant]
     Indication: DIABETES MELLITUS
     Dosage: 36 IU/DAY
     Route: 058
     Dates: start: 20060601, end: 20060714
  8. FILGRASTIM [Concomitant]
     Indication: PROPHYLAXIS
     Dosage: 300 G/DAY
     Route: 041
     Dates: start: 20060607, end: 20060614
  9. FILGRASTIM [Concomitant]
     Dosage: 300 G/DAY
     Route: 041
     Dates: start: 20060621, end: 20060714
  10. ZYLORIC [Concomitant]
     Indication: PROPHYLAXIS
     Dosage: 300 MG/DAY
     Route: 048
     Dates: start: 20060601, end: 20060606

REACTIONS (6)
  - MALAISE [None]
  - NEUTROPHIL COUNT DECREASED [None]
  - PLATELET COUNT DECREASED [None]
  - SEPSIS [None]
  - SYSTEMIC CANDIDA [None]
  - WHITE BLOOD CELL COUNT DECREASED [None]
